FAERS Safety Report 12410093 (Version 1)
Quarter: 2016Q2

REPORT INFORMATION
  Report Type: Spontaneous
  Country: US (occurrence: US)
  Receive Date: 20160527
  Receipt Date: 20160527
  Transmission Date: 20160815
  Serious: Yes (Hospitalization)
  Sender: FDA-Public Use
  Company Number: US-JNJCP-30000338284

PATIENT

DRUGS (1)
  1. AVEENO BABY DAILY MOISTURE [Suspect]
     Active Substance: DIMETHICONE
     Indication: PRODUCT USED FOR UNKNOWN INDICATION
     Route: 061

REACTIONS (3)
  - Precocious puberty [None]
  - Surgery [None]
  - Hormone level abnormal [Not Recovered/Not Resolved]
